FAERS Safety Report 20210170 (Version 6)
Quarter: 2023Q4

REPORT INFORMATION
  Report Type: Report from Study
  Country: CA (occurrence: CA)
  Receive Date: 20211221
  Receipt Date: 20231123
  Transmission Date: 20240110
  Serious: No
  Sender: FDA-Public Use
  Company Number: CA-JNJFOC-20211228704

PATIENT
  Sex: Male
  Weight: 99.2 kg

DRUGS (10)
  1. TREMFYA [Suspect]
     Active Substance: GUSELKUMAB
     Indication: Psoriasis
     Route: 065
     Dates: start: 20180401, end: 201804
  2. TREMFYA [Suspect]
     Active Substance: GUSELKUMAB
     Route: 065
     Dates: start: 20180526
  3. TREMFYA [Suspect]
     Active Substance: GUSELKUMAB
     Route: 065
     Dates: start: 20230107
  4. STELARA [Suspect]
     Active Substance: USTEKINUMAB
     Indication: Psoriasis
     Route: 058
     Dates: start: 20090515, end: 201401
  5. STELARA [Suspect]
     Active Substance: USTEKINUMAB
     Route: 058
     Dates: start: 201404, end: 20150915
  6. STELARA [Suspect]
     Active Substance: USTEKINUMAB
     Route: 058
     Dates: start: 201511, end: 20160317
  7. STELARA [Suspect]
     Active Substance: USTEKINUMAB
     Route: 058
     Dates: start: 20160813, end: 20161113
  8. STELARA [Suspect]
     Active Substance: USTEKINUMAB
     Route: 058
     Dates: start: 20170526, end: 201803
  9. IXEKIZUMAB [Concomitant]
     Active Substance: IXEKIZUMAB
     Dates: start: 20170106, end: 20170427
  10. ACITRETIN [Concomitant]
     Active Substance: ACITRETIN

REACTIONS (5)
  - Basal cell carcinoma [Recovered/Resolved]
  - Osteomyelitis [Unknown]
  - Drug ineffective [Unknown]
  - COVID-19 [Unknown]
  - Diabetic foot [Unknown]

NARRATIVE: CASE EVENT DATE: 20210101
